FAERS Safety Report 20566580 (Version 2)
Quarter: 2022Q1

REPORT INFORMATION
  Report Type: Report from Study
  Country: ES (occurrence: ES)
  Receive Date: 20220308
  Receipt Date: 20220324
  Transmission Date: 20220423
  Serious: Yes (Hospitalization, Disabling, Other)
  Sender: FDA-Public Use
  Company Number: ES-SA-SAC20211101000885

PATIENT
  Sex: Female
  Weight: 70 kg

DRUGS (10)
  1. PREDNISONE [Suspect]
     Active Substance: PREDNISONE
     Indication: Lethargy
     Dosage: 30 DOSAGE FORM (30 MG/DL)
  2. PREDNISONE [Suspect]
     Active Substance: PREDNISONE
     Indication: Oxygen saturation decreased
  3. PREDNISONE [Suspect]
     Active Substance: PREDNISONE
     Indication: Pharyngitis
  4. PREDNISONE [Suspect]
     Active Substance: PREDNISONE
     Indication: Cough
  5. INSULIN GLARGINE [Suspect]
     Active Substance: INSULIN GLARGINE
     Indication: Type 2 diabetes mellitus
     Dosage: 26 INTERNATIONAL UNIT, QD (26 IU, QD  )
     Route: 058
  6. INSULIN GLARGINE [Suspect]
     Active Substance: INSULIN GLARGINE
     Dosage: 28 INTERNATIONAL UNIT, QD (28 IU, QD  )
     Route: 058
  7. INSULIN GLARGINE [Suspect]
     Active Substance: INSULIN GLARGINE
     Dosage: UNK
     Route: 058
  8. INSULIN GLARGINE [Suspect]
     Active Substance: INSULIN GLARGINE
     Dosage: 26 INTERNATIONAL UNIT, QD (26 IU, QD)
     Route: 058
  9. METFORMIN [Concomitant]
     Active Substance: METFORMIN HYDROCHLORIDE
     Indication: Type 2 diabetes mellitus
     Dosage: 850 MILLIGRAM, BID (Q12H)
     Route: 048
  10. EZETIMIBE\ROSUVASTATIN [Concomitant]
     Active Substance: EZETIMIBE\ROSUVASTATIN
     Indication: Blood cholesterol abnormal
     Dosage: 1 DOSAGE FORM, QD (1 DF, QD  )
     Route: 048

REACTIONS (27)
  - Pneumonia [Recovered/Resolved]
  - Deafness [Recovering/Resolving]
  - Condition aggravated [Recovering/Resolving]
  - Tremor [Not Recovered/Not Resolved]
  - Hemiparesis [Not Recovered/Not Resolved]
  - Haemorrhagic stroke [Recovered/Resolved]
  - Hyperglycaemia [Unknown]
  - Cerebrovascular accident [Not Recovered/Not Resolved]
  - Myalgia [Recovering/Resolving]
  - Pyrexia [Not Recovered/Not Resolved]
  - Visual impairment [Unknown]
  - Diabetes mellitus inadequate control [Recovering/Resolving]
  - Walking disability [Not Recovered/Not Resolved]
  - Oxygen saturation increased [Recovering/Resolving]
  - Multiple use of single-use product [Unknown]
  - Blood glucose decreased [Recovered/Resolved]
  - Dysarthria [Not Recovered/Not Resolved]
  - Cough [Recovering/Resolving]
  - Mood altered [Unknown]
  - Lethargy [Recovering/Resolving]
  - Drooling [Recovering/Resolving]
  - Nervousness [Not Recovered/Not Resolved]
  - Memory impairment [Recovering/Resolving]
  - Anxiety [Not Recovered/Not Resolved]
  - Blood glucose increased [Recovering/Resolving]
  - Depression [Not Recovered/Not Resolved]
  - Pharyngitis [Recovering/Resolving]

NARRATIVE: CASE EVENT DATE: 20181101
